FAERS Safety Report 9541422 (Version 1)
Quarter: 2013Q3

REPORT INFORMATION
  Report Type: Spontaneous
  Country: US (occurrence: None)
  Receive Date: 20130919
  Receipt Date: 20130919
  Transmission Date: 20140515
  Serious: Yes (Hospitalization)
  Sender: FDA-Public Use
  Company Number: None

PATIENT
  Age: 58 Year
  Sex: Male
  Weight: 76.7 kg

DRUGS (1)
  1. DASATINIB [Suspect]
     Indication: CHRONIC MYELOID LEUKAEMIA
     Dosage: 70 MG BID PO
     Route: 048
     Dates: start: 20101217, end: 20130630

REACTIONS (3)
  - Pneumonia [None]
  - Pleural effusion [None]
  - Pulmonary hypertension [None]
